FAERS Safety Report 18454991 (Version 1)
Quarter: 2020Q4

REPORT INFORMATION
  Report Type: Report from Study
  Country: IT (occurrence: IT)
  Receive Date: 20201102
  Receipt Date: 20201102
  Transmission Date: 20210114
  Serious: Yes (Other)
  Sender: FDA-Public Use
  Company Number: IT-INCYTE CORPORATION-2019IN006060

PATIENT

DRUGS (5)
  1. JAKAVI [Suspect]
     Active Substance: RUXOLITINIB
     Indication: POLYCYTHAEMIA VERA
     Dosage: 20 OT
     Route: 048
     Dates: start: 20181029, end: 20190327
  2. JAKAVI [Suspect]
     Active Substance: RUXOLITINIB
     Dosage: 15 OT
     Route: 048
     Dates: start: 20190328, end: 20190331
  3. JAKAVI [Suspect]
     Active Substance: RUXOLITINIB
     Dosage: 10 OT
     Route: 048
     Dates: start: 20190515
  4. JAKAVI [Suspect]
     Active Substance: RUXOLITINIB
     Dosage: 5 OT
     Route: 048
     Dates: start: 20190411, end: 20190514
  5. JAKAVI [Suspect]
     Active Substance: RUXOLITINIB
     Dosage: 10 OT
     Route: 048
     Dates: start: 20190401, end: 20190410

REACTIONS (4)
  - Syncope [Recovered/Resolved]
  - Hyperuricaemia [Not Recovered/Not Resolved]
  - Anaemia [Recovered/Resolved]
  - Anaemia [Recovered/Resolved]

NARRATIVE: CASE EVENT DATE: 20190226
